FAERS Safety Report 16112050 (Version 1)
Quarter: 2019Q2

REPORT INFORMATION
  Report Type: Spontaneous
  Country: US (occurrence: US)
  Receive Date: 20190323
  Receipt Date: 20190323
  Transmission Date: 20190711
  Serious: Yes (Hospitalization, Disabling)
  Sender: FDA-Public Use
  Company Number: None

PATIENT
  Sex: Female
  Weight: 67.5 kg

DRUGS (8)
  1. OMEPROZOLE [Concomitant]
     Active Substance: OMEPRAZOLE
  2. RANITIDINE. [Concomitant]
     Active Substance: RANITIDINE
  3. PRO-BIOTICS [Concomitant]
  4. DILTIAZEM. [Concomitant]
     Active Substance: DILTIAZEM
  5. MULTIVITAMIN [Concomitant]
     Active Substance: VITAMINS
  6. NASACORT [Concomitant]
     Active Substance: TRIAMCINOLONE ACETONIDE
  7. SERTALINE HCL 100 MG [Suspect]
     Active Substance: SERTRALINE HYDROCHLORIDE
     Indication: IRRITABLE BOWEL SYNDROME
     Dosage: ?          QUANTITY:30 TABLET(S);?
     Route: 048
  8. XYZAL [Concomitant]
     Active Substance: LEVOCETIRIZINE DIHYDROCHLORIDE

REACTIONS (19)
  - Anxiety [None]
  - Diarrhoea [None]
  - Nausea [None]
  - Abdominal pain upper [None]
  - Dry mouth [None]
  - Fatigue [None]
  - Constipation [None]
  - Hyperhidrosis [None]
  - Neck pain [None]
  - Tremor [None]
  - Memory impairment [None]
  - Libido decreased [None]
  - Gastrointestinal pain [None]
  - Nervousness [None]
  - Facial spasm [None]
  - Abdominal pain [None]
  - Headache [None]
  - Musculoskeletal stiffness [None]
  - Pain in jaw [None]

NARRATIVE: CASE EVENT DATE: 20190129
